FAERS Safety Report 7517358-7 (Version None)
Quarter: 2011Q2

REPORT INFORMATION
  Report Type: 
  Country: None (occurrence: None)
  Receive Date: 20110601
  Receipt Date: 20110527
  Transmission Date: 20111010
  Serious: Yes (Death, Life-Threatening, Hospitalization, Other)
  Sender: FDA-Public Use
  Company Number: DE-GENZYME-FLUD-1000301

PATIENT
  Age: 12 Year
  Sex: Male

DRUGS (9)
  1. GRANULOCYTE COLONY STIMULATING FACTOR [Suspect]
     Indication: ACUTE LYMPHOCYTIC LEUKAEMIA
     Dosage: 400 MG/M2, QD FROM DAY 0 TO THE DAY OF ABSOLUTE NEUTROPHIL COUNT OF }1.0X10E9/L
     Route: 042
  2. ANTINEOPLASTIC AGENTS [Concomitant]
     Indication: ACUTE LYMPHOCYTIC LEUKAEMIA
     Dosage: UNK
     Route: 065
  3. FLUDARA [Suspect]
     Indication: ACUTE LYMPHOCYTIC LEUKAEMIA
     Dosage: 30 MG/M2, QD ON DAYS 1-4 OVER 30 MINUTES
     Route: 042
  4. FLUCONAZOLE [Concomitant]
     Indication: ANTIFUNGAL PROPHYLAXIS
     Dosage: 3 MG/KG, QD
     Route: 065
  5. IDARUBICIN HCL [Suspect]
     Indication: ACUTE LYMPHOCYTIC LEUKAEMIA
     Dosage: 12 MG/M2, QD ON DAYS 2-4 OVER 1 HR, 1 HR AFTER STARTING ARA-C
     Route: 042
  6. CORTICOSTEROIDS [Concomitant]
     Indication: PRODUCT USED FOR UNKNOWN INDICATION
     Dosage: QID STARTING BEFORE FIRST ARA-C INFUSION UNTIL 12 HRS AFTER LAST INFUSION
     Route: 047
  7. TRIMETHOPRIM + SULFAMETHOXAZOLE [Concomitant]
     Indication: ANTIBIOTIC PROPHYLAXIS
     Dosage: 5 MG/KG, TIW
     Route: 065
  8. ANTIEMETICS AND ANTINAUSEANTS [Concomitant]
     Indication: PRODUCT USED FOR UNKNOWN INDICATION
     Dosage: UNK
     Route: 065
  9. CYTARABINE [Suspect]
     Indication: ACUTE LYMPHOCYTIC LEUKAEMIA
     Dosage: 2000 MG/M2, QD ON DAYS 1-4 OVER 3 HRS, 4 HRS AFTER STARTING FLUDARABINE
     Route: 042

REACTIONS (3)
  - MUCOSAL INFLAMMATION [None]
  - INFECTION [None]
  - FEBRILE NEUTROPENIA [None]
